FAERS Safety Report 20990072 (Version 1)
Quarter: 2022Q2

REPORT INFORMATION
  Report Type: Spontaneous
  Country: US (occurrence: US)
  Receive Date: 20220621
  Receipt Date: 20220621
  Transmission Date: 20220720
  Serious: No
  Sender: FDA-Public Use
  Company Number: US-ELI_LILLY_AND_COMPANY-US202206008921

PATIENT
  Sex: Female

DRUGS (2)
  1. HUMALOG [Suspect]
     Active Substance: INSULIN LISPRO
     Indication: Type 2 diabetes mellitus
     Dosage: 36 U, DAILY
     Route: 058
     Dates: start: 200505
  2. HUMALOG [Suspect]
     Active Substance: INSULIN LISPRO
     Dosage: 36 U, DAILY
     Route: 058

REACTIONS (1)
  - Accidental exposure to product [Unknown]
